FAERS Safety Report 17376904 (Version 1)
Quarter: 2020Q1

REPORT INFORMATION
  Report Type: Spontaneous
  Country: RU (occurrence: RU)
  Receive Date: 20200206
  Receipt Date: 20200206
  Transmission Date: 20200409
  Serious: Yes (Other)
  Sender: FDA-Public Use
  Company Number: RU-ROCHE-2537826

PATIENT
  Age: 49 Year
  Sex: Male

DRUGS (11)
  1. OBINUTUZUMAB. [Suspect]
     Active Substance: OBINUTUZUMAB
     Indication: B-CELL LYMPHOMA
     Dosage: 3 DOSES, ON DAYS -8, -1, +7 (PRIOR TO AND AFTER AUTOLOGOUS BONE MARROW?TRANSPLANTATION)
     Route: 042
     Dates: start: 201709, end: 201709
  2. DEXAMETHASONE. [Suspect]
     Active Substance: DEXAMETHASONE
     Indication: B-CELL LYMPHOMA
     Dosage: AS A PART OF R-DHAP REGIMEN, 3 CYCLES OF R-DHAP
     Route: 065
     Dates: start: 2017, end: 2017
  3. MELPHALAN. [Suspect]
     Active Substance: MELPHALAN
     Indication: B-CELL LYMPHOMA
     Dosage: 1 DOSE, ON DAY -1 (PRIOR TO AUTOLOGOUS BONE MARROW TRANSPLANTATION)
     Route: 065
     Dates: start: 201709, end: 201709
  4. RITUXIMAB. [Suspect]
     Active Substance: RITUXIMAB
     Indication: B-CELL LYMPHOMA
     Dosage: AS A PART OF R-CHOP REGIMEN, 6 CYCLES OF R-CHOP
     Route: 065
     Dates: start: 201611, end: 2017
  5. ETOPOSIDE. [Suspect]
     Active Substance: ETOPOSIDE
     Indication: B-CELL LYMPHOMA
     Dosage: 4 DOSES, ON DAYS -5, -4, -3, -2 (PRIOR TO AUTOLOGOUS BONE MARROW TRANSPLANTATION)
     Route: 065
     Dates: start: 201709, end: 201709
  6. RITUXIMAB. [Suspect]
     Active Substance: RITUXIMAB
     Dosage: AS A PART OF R-DHAP REGIMEN, 3 CYCLES OF R-DHAP
     Route: 065
     Dates: start: 2017, end: 2017
  7. CYTARABINE. [Suspect]
     Active Substance: CYTARABINE
     Indication: B-CELL LYMPHOMA
     Dosage: AS A PART OF R-DHAP REGIMEN, 3 CYCLES OF R-DHAP
     Route: 065
     Dates: start: 2017, end: 2017
  8. RITUXIMAB. [Suspect]
     Active Substance: RITUXIMAB
     Dosage: MAINTENANCE THERAPY
     Route: 065
     Dates: start: 201801
  9. CISPLATIN. [Suspect]
     Active Substance: CISPLATIN
     Indication: B-CELL LYMPHOMA
     Route: 065
     Dates: start: 2017, end: 2017
  10. BENDAMUSTINE [Suspect]
     Active Substance: BENDAMUSTINE
     Indication: B-CELL LYMPHOMA
     Dosage: 2 DOSES, ON DAYS -7, -6 (PRIOR TO AUTOLOGOUS BONE MARROW TRANSPLANTATION)
     Route: 065
     Dates: start: 201709, end: 201709
  11. CYTARABINE. [Suspect]
     Active Substance: CYTARABINE
     Dosage: 4 DOSES, ON DAYS -5, -4, -3, -2 (PRIOR TO AUTOLOGOUS BONE MARROW TRANSPLANTATION)
     Route: 065
     Dates: start: 2017, end: 2017

REACTIONS (8)
  - Neutropenia [Recovered/Resolved]
  - Thrombocytopenia [Unknown]
  - Hypogammaglobulinaemia [Unknown]
  - Intestinal haemorrhage [Recovered/Resolved]
  - Febrile neutropenia [Recovered/Resolved]
  - Diarrhoea [Recovered/Resolved]
  - Leukopenia [Unknown]
  - Anaemia [Recovered/Resolved]

NARRATIVE: CASE EVENT DATE: 201711
